FAERS Safety Report 6664805-9 (Version None)
Quarter: 2010Q1

REPORT INFORMATION
  Report Type: 
  Country: None (occurrence: None)
  Receive Date: 20100315
  Receipt Date: 20100315
  Transmission Date: 20100710
  Serious: Yes (Other)
  Sender: FDA-Public Use
  Company Number: PD-123

PATIENT
  Sex: Male

DRUGS (2)
  1. GRANISETRON 2 MG [Suspect]
     Indication: NAUSEA
     Dosage: 2 MG, 1 X DAY FOR 5 DAYS, ORAL
     Route: 048
  2. GRANISETRON 2 MG [Suspect]
     Indication: VOMITING
     Dosage: 2 MG, 1 X DAY FOR 5 DAYS, ORAL
     Route: 048

REACTIONS (2)
  - ELECTROCARDIOGRAM QT PROLONGED [None]
  - MEGACOLON [None]
